FAERS Safety Report 5824616-0 (Version None)
Quarter: 2008Q3

REPORT INFORMATION
  Report Type: 
  Country: None (occurrence: None)
  Receive Date: 20080728
  Receipt Date: 20080715
  Transmission Date: 20090109
  Serious: Yes (Hospitalization)
  Sender: FDA-Public Use
  Company Number: US-ELI_LILLY_AND_COMPANY-US200806004913

PATIENT
  Sex: Female

DRUGS (16)
  1. FORTEO [Suspect]
     Indication: OSTEOPOROSIS
     Dosage: 20 UG, DAILY (1/D)
     Dates: start: 20061001
  2. AGGRENOX [Concomitant]
     Indication: THROMBOSIS
  3. PLAVIX [Concomitant]
     Indication: THROMBOSIS
     Dates: start: 20000101
  4. PLAVIX [Concomitant]
     Dates: start: 20080601
  5. SYNTHROID [Concomitant]
  6. PRILOSEC [Concomitant]
  7. DARVOCET [Concomitant]
  8. MICARDIS [Concomitant]
  9. IMDUR [Concomitant]
  10. HYDROCHLOROTHIAZIDE [Concomitant]
  11. ATENOLOL [Concomitant]
  12. DRISDOL [Concomitant]
  13. PEPCID [Concomitant]
  14. ASPIRIN [Concomitant]
  15. TUMS [Concomitant]
  16. DIAZEPAM [Concomitant]

REACTIONS (11)
  - ASTHENIA [None]
  - CAROTID ARTERY DISEASE [None]
  - CEREBRAL ATROPHY [None]
  - DRUG INTOLERANCE [None]
  - EMPTY SELLA SYNDROME [None]
  - EYE HAEMORRHAGE [None]
  - EYELID OEDEMA [None]
  - HYPOAESTHESIA [None]
  - NERVOUSNESS [None]
  - RASH ERYTHEMATOUS [None]
  - VISUAL ACUITY REDUCED [None]
